FAERS Safety Report 10032277 (Version 2)
Quarter: 2014Q2

REPORT INFORMATION
  Report Type: Spontaneous
  Country: AU (occurrence: AU)
  Receive Date: 20140324
  Receipt Date: 20140404
  Transmission Date: 20141212
  Serious: Yes (Other)
  Sender: FDA-Public Use
  Company Number: AU-NAPPMUNDI-GBR-2014-0017433

PATIENT
  Age: 29 Year
  Sex: Male

DRUGS (2)
  1. OXYCONTIN TABLETS [Suspect]
     Indication: PRODUCT USED FOR UNKNOWN INDICATION
  2. METHAMPHETAMINE [Suspect]
     Indication: PRODUCT USED FOR UNKNOWN INDICATION

REACTIONS (2)
  - Drug abuse [Unknown]
  - Physical assault [Unknown]
